FAERS Safety Report 15833705 (Version 6)
Quarter: 2019Q2

REPORT INFORMATION
  Report Type: Report from Study
  Country: US (occurrence: US)
  Receive Date: 20190116
  Receipt Date: 20190624
  Transmission Date: 20190711
  Serious: Yes (Other)
  Sender: FDA-Public Use
  Company Number: PHEH2019US001929

PATIENT
  Sex: Female

DRUGS (1)
  1. GILENYA [Suspect]
     Active Substance: FINGOLIMOD HYDROCHLORIDE
     Indication: MULTIPLE SCLEROSIS
     Dosage: 0.5 MG, QD
     Route: 048
     Dates: start: 20190126

REACTIONS (7)
  - Hypoaesthesia [Unknown]
  - Multiple sclerosis relapse [Unknown]
  - Cough [Unknown]
  - Malaise [Unknown]
  - Paranasal sinus discomfort [Unknown]
  - Dysuria [Unknown]
  - Headache [Unknown]
